FAERS Safety Report 5774731-5 (Version None)
Quarter: 2008Q2

REPORT INFORMATION
  Report Type: 
  Country: None (occurrence: None)
  Receive Date: 20080616
  Receipt Date: 20080616
  Transmission Date: 20081010
  Serious: No
  Sender: FDA-Public Use
  Company Number: None

PATIENT
  Sex: Female
  Weight: 67.1324 kg

DRUGS (1)
  1. FOSAMAX [Suspect]
     Indication: BONE DISORDER
     Dosage: 1 A WEEK
     Dates: start: 20000101, end: 20020101

REACTIONS (2)
  - ALOPECIA [None]
  - STRESS [None]
